FAERS Safety Report 11890263 (Version 1)
Quarter: 2016Q1

REPORT INFORMATION
  Report Type: Spontaneous
  Country: US (occurrence: US)
  Receive Date: 20160105
  Receipt Date: 20160105
  Transmission Date: 20160526
  Serious: No
  Sender: FDA-Public Use
  Company Number: US-GLAXOSMITHKLINE-US2015GSK181047

PATIENT
  Age: 66 Year
  Sex: Female

DRUGS (2)
  1. REGRANEX [Suspect]
     Active Substance: BECAPLERMIN
     Indication: WOUND
     Route: 061
  2. MUPIROCIN OINTMENT [Suspect]
     Active Substance: MUPIROCIN
     Indication: WOUND
     Route: 061

REACTIONS (4)
  - Wound complication [Recovering/Resolving]
  - Poor peripheral circulation [Unknown]
  - Peripheral swelling [Recovering/Resolving]
  - Sensation of blood flow [Recovering/Resolving]

NARRATIVE: CASE EVENT DATE: 201511
